FAERS Safety Report 6889306-4 (Version None)
Quarter: 2010Q3

REPORT INFORMATION
  Report Type: 
  Country: None (occurrence: None)
  Receive Date: 20100730
  Receipt Date: 20080118
  Transmission Date: 20110219
  Serious: No
  Sender: FDA-Public Use
  Company Number: US-PFIZER INC-2007088179

PATIENT
  Age: 80 Year
  Sex: Female

DRUGS (9)
  1. LIPITOR [Suspect]
     Indication: BLOOD CHOLESTEROL INCREASED
     Route: 048
  2. ZEBETA [Concomitant]
  3. SYNTHROID [Concomitant]
  4. ESTRACE [Concomitant]
  5. PROTONIX [Concomitant]
  6. MONTELUKAST SODIUM [Concomitant]
  7. DOXYCYCLINE [Concomitant]
  8. TORSEMIDE [Concomitant]
  9. POTASSIUM CHLORIDE [Concomitant]

REACTIONS (2)
  - C-REACTIVE PROTEIN INCREASED [None]
  - POLYMYALGIA RHEUMATICA [None]
